FAERS Safety Report 18784189 (Version 2)
Quarter: 2021Q1

REPORT INFORMATION
  Report Type: Spontaneous
  Country: US (occurrence: US)
  Receive Date: 20210125
  Receipt Date: 20210212
  Transmission Date: 20210419
  Serious: Yes (Other)
  Sender: FDA-Public Use
  Company Number: US-ABBVIE-21K-163-3740259-00

PATIENT
  Age: 33 Year
  Sex: Female
  Weight: 57.66 kg

DRUGS (1)
  1. ORILISSA [Suspect]
     Active Substance: ELAGOLIX SODIUM
     Indication: ENDOMETRIOSIS
     Route: 048
     Dates: start: 201904, end: 202004

REACTIONS (7)
  - Tooth demineralisation [Recovered/Resolved]
  - Toothache [Recovered/Resolved]
  - Arthralgia [Recovered/Resolved]
  - Adverse drug reaction [Unknown]
  - Bone loss [Unknown]
  - Hyperaesthesia teeth [Recovered/Resolved]
  - Dental caries [Recovered/Resolved]

NARRATIVE: CASE EVENT DATE: 201907
